FAERS Safety Report 18113342 (Version 2)
Quarter: 2022Q2

REPORT INFORMATION
  Report Type: Spontaneous
  Country: US (occurrence: US)
  Receive Date: 20200805
  Receipt Date: 20220512
  Transmission Date: 20220721
  Serious: No
  Sender: FDA-Public Use
  Company Number: US-PFIZER INC-2020294885

PATIENT
  Age: 35 Year
  Sex: Female

DRUGS (1)
  1. XELJANZ [Suspect]
     Active Substance: TOFACITINIB CITRATE
     Dosage: 5 MG
     Dates: start: 20120801

REACTIONS (4)
  - Pain [Unknown]
  - Product dose omission issue [Unknown]
  - Drug ineffective [Unknown]
  - Disease progression [Unknown]
